FAERS Safety Report 22623141 (Version 1)
Quarter: 2023Q2

REPORT INFORMATION
  Report Type: Report from Study
  Country: TW (occurrence: TW)
  Receive Date: 20230621
  Receipt Date: 20230621
  Transmission Date: 20230722
  Serious: Yes (Hospitalization)
  Sender: FDA-Public Use
  Company Number: TW-ABBVIE-5296161

PATIENT
  Sex: Female
  Weight: 48 kg

DRUGS (3)
  1. HUMIRA [Suspect]
     Active Substance: ADALIMUMAB
     Indication: Colitis ulcerative
     Dosage: 160 MG AND 80 MG
     Route: 058
     Dates: start: 20230522, end: 20230605
  2. IMURAN [Concomitant]
     Active Substance: AZATHIOPRINE
     Indication: Colitis ulcerative
     Route: 048
     Dates: start: 20230126
  3. ASACOL [Concomitant]
     Active Substance: MESALAMINE
     Indication: Colitis ulcerative
     Route: 048
     Dates: start: 20230126

REACTIONS (8)
  - Diarrhoea [Unknown]
  - Gastrointestinal wall thickening [Unknown]
  - Chills [Unknown]
  - Gastrointestinal motility disorder [Unknown]
  - Clostridium difficile infection [Unknown]
  - Haemoglobin decreased [Unknown]
  - Salmonellosis [Unknown]
  - C-reactive protein increased [Unknown]

NARRATIVE: CASE EVENT DATE: 20230101
